FAERS Safety Report 25143584 (Version 1)
Quarter: 2025Q2

REPORT INFORMATION
  Report Type: Spontaneous
  Country: PT (occurrence: PT)
  Receive Date: 20250401
  Receipt Date: 20250401
  Transmission Date: 20250716
  Serious: Yes (Other)
  Sender: AMGEN
  Company Number: PT-AMGEN-PRTSP2025059684

PATIENT
  Age: 60 Year
  Sex: Female

DRUGS (2)
  1. BLINATUMOMAB [Suspect]
     Active Substance: BLINATUMOMAB
     Indication: B-cell type acute leukaemia
     Route: 065
  2. PONATINIB [Suspect]
     Active Substance: PONATINIB
     Indication: B-cell type acute leukaemia
     Route: 065

REACTIONS (2)
  - Central nervous system leukaemia [Unknown]
  - Dyschromatopsia [Unknown]
